FAERS Safety Report 7964478-9 (Version None)
Quarter: 2011Q4

REPORT INFORMATION
  Report Type: 
  Country: None (occurrence: None)
  Receive Date: 20111206
  Receipt Date: 20111123
  Transmission Date: 20120403
  Serious: Yes (Hospitalization)
  Sender: FDA-Public Use
  Company Number: DSM-2011-01143

PATIENT
  Age: 91 Year
  Sex: Female

DRUGS (5)
  1. OLMESARTAN MEDOXOMIL [Suspect]
     Indication: PRODUCT USED FOR UNKNOWN INDICATION
     Dosage: 1 DOSAGE FORMS (1 DOSAGE FORMS, 1 IN 1 D), ORAL
     Route: 048
     Dates: start: 20090101
  2. FENTANYL [Suspect]
     Indication: PRODUCT USED FOR UNKNOWN INDICATION
     Dosage: (1 IN 3 D), TRANSDERMAL
     Route: 062
     Dates: start: 20111001, end: 20111011
  3. LEVOTHYROXINE SODIUM [Suspect]
     Indication: PRODUCT USED FOR UNKNOWN INDICATION
     Dosage: 112.5 MCG 9112.5 MCG, 1 IN 1 D), ORAL
     Route: 048
  4. ISRADIPINE [Suspect]
     Indication: PRODUCT USED FOR UNKNOWN INDICATION
     Dosage: (1 DOSAGE FORMS), ORAL
     Route: 048
  5. LANSOPRAZOLE [Suspect]
     Indication: PRODUCT USED FOR UNKNOWN INDICATION
     Dosage: 1 DOSAGE FORMS (1 DOSAGE FORMS, 1 IN 1 D), ORAL
     Route: 048

REACTIONS (5)
  - TOXIC EPIDERMAL NECROLYSIS [None]
  - EPIDERMAL NECROSIS [None]
  - PEMPHIGOID [None]
  - FIXED ERUPTION [None]
  - DERMATITIS BULLOUS [None]
